FAERS Safety Report 14005247 (Version 2)
Quarter: 2017Q4

REPORT INFORMATION
  Report Type: Report from Study
  Country: GB (occurrence: GB)
  Receive Date: 20170922
  Receipt Date: 20171002
  Transmission Date: 20180321
  Serious: Yes (Hospitalization, Other)
  Sender: FDA-Public Use
  Company Number: GB-REGENERON PHARMACEUTICALS, INC.-2017-22455

PATIENT

DRUGS (1)
  1. EYLEA [Suspect]
     Active Substance: AFLIBERCEPT
     Indication: DIABETIC RETINAL OEDEMA
     Dosage: UNK UNK, ONCE
     Route: 031

REACTIONS (9)
  - Adverse drug reaction [Recovered/Resolved]
  - Fatigue [Recovered/Resolved]
  - Vomiting [Unknown]
  - Hypotension [Not Recovered/Not Resolved]
  - Neuropathy peripheral [Recovered/Resolved]
  - Diarrhoea [Unknown]
  - Diarrhoea [Recovered/Resolved]
  - Neutropenic sepsis [Recovered/Resolved]
  - Vomiting [Recovered/Resolved]

NARRATIVE: CASE EVENT DATE: 20170410
